FAERS Safety Report 23287086 (Version 3)
Quarter: 2025Q1

REPORT INFORMATION
  Report Type: Report from Study
  Country: DE (occurrence: DE)
  Receive Date: 20231212
  Receipt Date: 20250226
  Transmission Date: 20250409
  Serious: Yes (Hospitalization, Other)
  Sender: ROCHE
  Company Number: DE-ROCHE-2721337

PATIENT
  Age: 56 Year
  Sex: Female

DRUGS (5)
  1. OCREVUS [Suspect]
     Active Substance: OCRELIZUMAB
     Indication: Relapsing-remitting multiple sclerosis
     Route: 042
     Dates: start: 20201009
  2. OCREVUS [Suspect]
     Active Substance: OCRELIZUMAB
     Route: 042
     Dates: start: 20201023
  3. OCREVUS [Suspect]
     Active Substance: OCRELIZUMAB
     Dosage: 600 MG ONCE IN 188 DAYS AND THEN 600 MG ONCE IN 158 DAYS, THEN ONCE IN 203 DAYS
     Route: 042
     Dates: start: 20210720
  4. CANDESARTAN [Concomitant]
     Active Substance: CANDESARTAN
     Indication: Hypertension
     Dosage: 1-0-0
  5. CORTISONE [Concomitant]
     Active Substance: CORTISONE

REACTIONS (20)
  - Fatigue [Recovered/Resolved]
  - Foot fracture [Recovered/Resolved]
  - Fall [Unknown]
  - White blood cell count decreased [Recovered/Resolved]
  - B-lymphocyte count decreased [Not Recovered/Not Resolved]
  - Headache [Recovered/Resolved]
  - Low density lipoprotein increased [Recovered/Resolved]
  - High density lipoprotein increased [Recovered/Resolved]
  - Blood cholesterol increased [Recovered/Resolved]
  - Muscle spasticity [Recovering/Resolving]
  - Gait disturbance [Not Recovered/Not Resolved]
  - COVID-19 [Recovered/Resolved with Sequelae]
  - Peroneal nerve palsy [Not Recovered/Not Resolved]
  - Thermal burn [Recovered/Resolved]
  - Pyrexia [Recovered/Resolved]
  - Weight decreased [Recovered/Resolved]
  - Pneumonitis [Recovered/Resolved]
  - Immunoglobulins decreased [Recovering/Resolving]
  - Gingival discomfort [Recovered/Resolved]
  - Weight increased [Recovered/Resolved]

NARRATIVE: CASE EVENT DATE: 20201009
